FAERS Safety Report 10112227 (Version 2)
Quarter: 2014Q2

REPORT INFORMATION
  Report Type: Report from Study
  Country: ES (occurrence: ES)
  Receive Date: 20140425
  Receipt Date: 20140425
  Transmission Date: 20141212
  Serious: Yes (Life-Threatening, Hospitalization)
  Sender: FDA-Public Use
  Company Number: PHHO2010ES12317

PATIENT
  Sex: 0

DRUGS (4)
  1. SOM230 [Suspect]
     Dates: start: 20091009, end: 20100719
  2. CALCIUM SANDOZ FORTE D [Concomitant]
     Indication: OSTEOPOROSIS
     Dosage: UNK
  3. COZAAR [Concomitant]
     Indication: HYPERTENSION
     Dosage: UNK
  4. FOSAMAX [Concomitant]
     Indication: OSTEOPOROSIS
     Dosage: UNK

REACTIONS (3)
  - Pancreatitis acute [Recovered/Resolved]
  - Amylase increased [Not Recovered/Not Resolved]
  - Blood bilirubin increased [Not Recovered/Not Resolved]
